FAERS Safety Report 5033439-4 (Version None)
Quarter: 2006Q2

REPORT INFORMATION
  Report Type: 
  Country: None (occurrence: None)
  Receive Date: 20060518
  Receipt Date: 20051111
  Transmission Date: 20061013
  Serious: Yes (Other)
  Sender: FDA-Public Use
  Company Number: 2005154120

PATIENT
  Age: 31 Year
  Sex: Female
  Weight: 52.1637 kg

DRUGS (2)
  1. DEPO-PROVERA [Suspect]
     Indication: CONTRACEPTION
     Dosage: 150 MG (150 MG,EVERY THREE MONTHS, 1ST NIJECTION),INTRAMUSCULAR
     Route: 030
  2. ATENOLOL [Concomitant]

REACTIONS (7)
  - ARTHRALGIA [None]
  - EYE PRURITUS [None]
  - FEELING HOT [None]
  - HYPERSENSITIVITY [None]
  - LACRIMATION INCREASED [None]
  - OCULAR HYPERAEMIA [None]
  - RASH [None]
